FAERS Safety Report 14277409 (Version 1)
Quarter: 2017Q4

REPORT INFORMATION
  Report Type: Spontaneous
  Country: JP (occurrence: JP)
  Receive Date: 20171211
  Receipt Date: 20171211
  Transmission Date: 20180321
  Serious: Yes (Other)
  Sender: FDA-Public Use
  Company Number: JP-OTSUKA-000537

PATIENT

DRUGS (8)
  1. ABILIFY [Suspect]
     Active Substance: ARIPIPRAZOLE
     Dosage: 12 MG, QD
     Route: 048
     Dates: start: 20070815, end: 20080409
  2. GASMOTIN [Concomitant]
     Active Substance: MOSAPRIDE CITRATE
     Dosage: 7.5 MG, BID
     Route: 048
     Dates: start: 20080201
  3. ABILIFY [Suspect]
     Active Substance: ARIPIPRAZOLE
     Indication: SCHIZOPHRENIA
     Dosage: 30 MG, QD
     Route: 048
     Dates: start: 20060928, end: 20070811
  4. PANPYOTIN [Concomitant]
     Dosage: 250 MG, BID
     Route: 048
  5. BIPERIDEN LACTATE [Concomitant]
     Active Substance: BIPERIDEN LACTATE
     Dosage: 5 MG, QD
     Route: 030
     Dates: start: 20080404, end: 20080404
  6. MAGNESIUM OXIDE. [Concomitant]
     Active Substance: MAGNESIUM OXIDE
     Dosage: 1.25 MG, BID
     Route: 048
  7. PARKIN [Concomitant]
     Active Substance: ETHOPROPAZINE
     Indication: EXTRAPYRAMIDAL DISORDER
     Dosage: 15 MG, BID
     Route: 048
     Dates: start: 20070923
  8. AKINETON [Concomitant]
     Active Substance: BIPERIDEN HYDROCHLORIDE
     Dosage: 5 MG, QD
     Route: 030
     Dates: start: 20080404, end: 20080404

REACTIONS (2)
  - Blood creatine phosphokinase increased [Recovered/Resolved]
  - Blood creatine phosphokinase increased [Recovered/Resolved]

NARRATIVE: CASE EVENT DATE: 20070808
